FAERS Safety Report 9258507 (Version 1)
Quarter: 2013Q2

REPORT INFORMATION
  Report Type: Spontaneous
  Country: US (occurrence: US)
  Receive Date: 20130426
  Receipt Date: 20130426
  Transmission Date: 20140414
  Serious: No
  Sender: FDA-Public Use
  Company Number: US-PFIZER INC-2013129369

PATIENT
  Age: 20 Year
  Sex: Male
  Weight: 68.03 kg

DRUGS (1)
  1. ALAVERT [Suspect]
     Indication: HYPERSENSITIVITY
     Dosage: 10 MG, DAILY
     Route: 048
     Dates: start: 201304

REACTIONS (1)
  - Drug ineffective [Unknown]
